FAERS Safety Report 23181212 (Version 1)
Quarter: 2023Q4

REPORT INFORMATION
  Report Type: Spontaneous
  Country: FR (occurrence: FR)
  Receive Date: 20231114
  Receipt Date: 20231114
  Transmission Date: 20240110
  Serious: Yes (Other)
  Sender: FDA-Public Use
  Company Number: None

PATIENT

DRUGS (4)
  1. AMIODARONE [Suspect]
     Active Substance: AMIODARONE
     Indication: Arrhythmia
     Dosage: 300 MILLIGRAM, SINGLE
     Route: 042
     Dates: start: 20220913, end: 20220913
  2. CISATRACURIUM [Suspect]
     Active Substance: CISATRACURIUM
     Indication: General anaesthesia
     Dosage: 50 MILLIGRAM, SINGLE
     Route: 042
     Dates: start: 20220913, end: 20220913
  3. DOBUTAMINE [Suspect]
     Active Substance: DOBUTAMINE HYDROCHLORIDE
     Indication: Heart valve replacement
     Dosage: 0.5 MILLIGRAM
     Route: 042
     Dates: start: 20220913, end: 20220913
  4. PROTAMINE [Suspect]
     Active Substance: PROTAMINE
     Indication: Heart valve replacement
     Dosage: 24000 INTERNATIONAL UNIT, SINGLE
     Route: 042
     Dates: start: 20220913, end: 20220913

REACTIONS (2)
  - Hypotension [Recovered/Resolved]
  - Oxygen saturation decreased [Recovered/Resolved]

NARRATIVE: CASE EVENT DATE: 20230913
